FAERS Safety Report 6333197-7 (Version None)
Quarter: 2009Q3

REPORT INFORMATION
  Report Type: 
  Country: None (occurrence: None)
  Receive Date: 20090828
  Receipt Date: 20090819
  Transmission Date: 20100115
  Serious: Yes (Hospitalization)
  Sender: FDA-Public Use
  Company Number: IT-GENENTECH-289157

PATIENT
  Sex: Male

DRUGS (2)
  1. AVASTIN [Suspect]
     Indication: RENAL CANCER
     Dosage: 10 MG/KG, UNK
     Route: 042
     Dates: start: 20090102, end: 20090116
  2. ROFERON-A [Concomitant]
     Indication: DRUG USE FOR UNKNOWN INDICATION
     Dosage: UNK
     Dates: start: 20090103, end: 20090103

REACTIONS (2)
  - ALTERED STATE OF CONSCIOUSNESS [None]
  - PYREXIA [None]
